FAERS Safety Report 5275810-1 (Version None)
Quarter: 2007Q1

REPORT INFORMATION
  Report Type: 
  Country: None (occurrence: None)
  Receive Date: 20070326
  Receipt Date: 20070322
  Transmission Date: 20070707
  Serious: Yes (Hospitalization)
  Sender: FDA-Public Use
  Company Number: FR-GLAXOSMITHKLINE-B0463323A

PATIENT
  Age: 77 Year
  Sex: Male

DRUGS (18)
  1. FORTUM [Suspect]
     Route: 042
     Dates: start: 20070214, end: 20070223
  2. CIPROFLOXACIN HCL [Concomitant]
     Route: 042
     Dates: start: 20070215, end: 20070223
  3. HYPNOVEL [Concomitant]
     Indication: SEDATION
     Route: 042
     Dates: start: 20070122, end: 20070209
  4. SUFENTA [Concomitant]
     Indication: SEDATION
     Route: 042
     Dates: start: 20070122, end: 20070209
  5. AMIKACIN [Concomitant]
     Route: 042
     Dates: start: 20070209, end: 20070215
  6. PIPERACILLINE [Concomitant]
     Dosage: 4G THREE TIMES PER DAY
     Route: 042
     Dates: start: 20070209, end: 20070214
  7. DAFALGAN [Concomitant]
     Route: 042
     Dates: start: 20070212, end: 20070214
  8. EUPRESSYL [Concomitant]
     Route: 042
     Dates: start: 20070212, end: 20070219
  9. LOXEN [Concomitant]
     Dosage: 8MG PER DAY
     Route: 042
     Dates: start: 20070219
  10. HEPARIN [Concomitant]
  11. BURINEX [Concomitant]
     Route: 042
  12. CORDARONE [Concomitant]
     Dosage: 1AMP PER DAY
     Route: 042
     Dates: start: 20070217, end: 20070227
  13. NEXIUM [Concomitant]
     Dosage: 1TAB PER DAY
     Route: 048
     Dates: start: 20070214, end: 20070220
  14. PROZAC [Concomitant]
     Dosage: 1TAB PER DAY
     Route: 048
     Dates: start: 20070220, end: 20070226
  15. LISINOPRIL [Concomitant]
  16. BISOPROLOL [Concomitant]
  17. PRAVASTATIN [Concomitant]
  18. HEMODIALYSIS [Concomitant]

REACTIONS (4)
  - DRUG EFFECT PROLONGED [None]
  - DRUG INTERACTION [None]
  - ENCEPHALOPATHY [None]
  - OVERDOSE [None]
